FAERS Safety Report 7230404-3 (Version None)
Quarter: 2011Q1

REPORT INFORMATION
  Report Type: 
  Country: None (occurrence: None)
  Receive Date: 20110118
  Receipt Date: 20110110
  Transmission Date: 20110831
  Serious: Yes (Other)
  Sender: FDA-Public Use
  Company Number: US-JNJFOC-20101007993

PATIENT
  Sex: Female
  Weight: 63.05 kg

DRUGS (8)
  1. AMOXICILLIN [Concomitant]
  2. METAMUCIL-2 [Concomitant]
  3. REMICADE [Suspect]
     Indication: COLITIS ULCERATIVE
     Route: 042
  4. PREDNISONE [Concomitant]
  5. FLONASE [Concomitant]
  6. PERCOCET [Concomitant]
  7. BENADRYL [Concomitant]
  8. VITAMIN D [Concomitant]

REACTIONS (3)
  - COLITIS ULCERATIVE [None]
  - ANTINUCLEAR ANTIBODY POSITIVE [None]
  - SERUM SICKNESS [None]
